FAERS Safety Report 18265436 (Version 1)
Quarter: 2020Q3

REPORT INFORMATION
  Report Type: Other
  Country: US (occurrence: US)
  Receive Date: 20200914
  Receipt Date: 20200914
  Transmission Date: 20201103
  Serious: No
  Sender: FDA-Public Use
  Company Number: US-LEADIANT BIOSCIENCES INC-2020STPI000204

PATIENT
  Sex: Female

DRUGS (4)
  1. GLEOSTINE [Concomitant]
     Active Substance: LOMUSTINE
  2. PANTOPRAZOLE [Concomitant]
     Active Substance: PANTOPRAZOLE
  3. MATULANE [Suspect]
     Active Substance: PROCARBAZINE HYDROCHLORIDE
     Indication: BRAIN NEOPLASM MALIGNANT
     Dosage: 50 MG BID
     Route: 048
     Dates: start: 20190619
  4. ONDANSETRON [Concomitant]
     Active Substance: ONDANSETRON

REACTIONS (3)
  - Rash [Not Recovered/Not Resolved]
  - Ear swelling [Not Recovered/Not Resolved]
  - Urticaria [Not Recovered/Not Resolved]
